FAERS Safety Report 6387619-6 (Version None)
Quarter: 2009Q4

REPORT INFORMATION
  Report Type: 
  Country: None (occurrence: None)
  Receive Date: 20091005
  Receipt Date: 20090930
  Transmission Date: 20100525
  Serious: Yes (Death)
  Sender: FDA-Public Use
  Company Number: JP-JNJFOC-20091000290

PATIENT
  Sex: Male
  Weight: 41 kg

DRUGS (5)
  1. ITRIZOLE [Suspect]
     Route: 042
     Dates: start: 20090831, end: 20090910
  2. ITRIZOLE [Suspect]
     Indication: PNEUMONIA
     Route: 042
     Dates: start: 20090831, end: 20090910
  3. MEROPENEM TRIHYDRATE [Suspect]
     Indication: PNEUMONIA
     Route: 042
     Dates: start: 20090903, end: 20090910
  4. CEFEPIME DIHYDROCHLORIDE [Suspect]
     Indication: PNEUMONIA
     Route: 042
     Dates: start: 20090831, end: 20090902
  5. GANCICLOVIR [Suspect]
     Indication: PNEUMONIA
     Route: 042
     Dates: start: 20090904, end: 20090910

REACTIONS (7)
  - BLOOD LACTATE DEHYDROGENASE INCREASED [None]
  - BLOOD UREA INCREASED [None]
  - CYTOMEGALOVIRUS TEST [None]
  - HEPATIC ENZYME INCREASED [None]
  - HYPOTENSION [None]
  - RESPIRATORY FAILURE [None]
  - WHITE BLOOD CELL COUNT INCREASED [None]
